FAERS Safety Report 5956793-5 (Version None)
Quarter: 2008Q4

REPORT INFORMATION
  Report Type: 
  Country: None (occurrence: None)
  Receive Date: 20081118
  Receipt Date: 20081111
  Transmission Date: 20090506
  Serious: Yes (Hospitalization)
  Sender: FDA-Public Use
  Company Number: DE-AVENTIS-200812970DE

PATIENT
  Age: 43 Year
  Sex: Female

DRUGS (1)
  1. ARAVA [Suspect]
     Indication: RHEUMATOID ARTHRITIS
     Dosage: DOSE: NOT REPORTED
     Route: 048

REACTIONS (3)
  - CARDIOGENIC SHOCK [None]
  - HYPOKALAEMIA [None]
  - VENTRICULAR TACHYCARDIA [None]
